FAERS Safety Report 10350914 (Version 1)
Quarter: 2014Q3

REPORT INFORMATION
  Report Type: Spontaneous
  Country: CN (occurrence: CN)
  Receive Date: 20140730
  Receipt Date: 20140730
  Transmission Date: 20150326
  Serious: Yes (Other)
  Sender: FDA-Public Use
  Company Number: CN-PFIZER INC-2014210977

PATIENT
  Age: 54 Year
  Sex: Female
  Weight: 48 kg

DRUGS (1)
  1. MS CONTIN [Suspect]
     Active Substance: MORPHINE SULFATE
     Indication: ENDOMETRIAL CANCER
     Dosage: 1 DF, 2X/DAY
     Route: 048
     Dates: start: 20140301, end: 20140301

REACTIONS (4)
  - Restlessness [Recovered/Resolved]
  - Screaming [Recovered/Resolved]
  - Agitation [Recovered/Resolved]
  - Mental disorder [Recovered/Resolved]

NARRATIVE: CASE EVENT DATE: 20140301
